FAERS Safety Report 16515755 (Version 1)
Quarter: 2019Q3

REPORT INFORMATION
  Report Type: Spontaneous
  Country: US (occurrence: US)
  Receive Date: 20190522
  Receipt Date: 20190522
  Transmission Date: 20191004
  Serious: Yes (Other)
  Sender: FDA-Public Use
  Company Number: None

PATIENT
  Age: 23 Year
  Sex: Male

DRUGS (9)
  1. LINEZOLID. [Concomitant]
     Active Substance: LINEZOLID
  2. PULMOZYME [Concomitant]
     Active Substance: DORNASE ALFA
  3. CEPHALEXIN. [Concomitant]
     Active Substance: CEPHALEXIN
  4. SYMDEKO [Suspect]
     Active Substance: IVACAFTOR\TEZACAFTOR
     Indication: CYSTIC FIBROSIS
     Dosage: DATES OF USE  25/MAY/2019?1 T QAM PO  1 T QPM PO
     Route: 048
  5. CETIRIZINE [Concomitant]
     Active Substance: CETIRIZINE HYDROCHLORIDE
  6. VIT D [Concomitant]
     Active Substance: VITAMIN D NOS
  7. LINEZOLID 600MG [Suspect]
     Active Substance: LINEZOLID
     Indication: CYSTIC FIBROSIS
     Dosage: DATES OF USE   15/MAY/2019 TO ONGOING
     Route: 048
  8. CREON [Concomitant]
     Active Substance: PANCRELIPASE AMYLASE\PANCRELIPASE LIPASE\PANCRELIPASE PROTEASE
  9. LANNSOPRAZOLE [Concomitant]

REACTIONS (1)
  - Antibiotic prophylaxis [None]

NARRATIVE: CASE EVENT DATE: 20190510
